FAERS Safety Report 19245340 (Version 2)
Quarter: 2025Q3

REPORT INFORMATION
  Report Type: Spontaneous
  Country: EU (occurrence: EU)
  Receive Date: 20210512
  Receipt Date: 20250806
  Transmission Date: 20251021
  Serious: Yes (Hospitalization, Other)
  Sender: AUROBINDO
  Company Number: EU-MYLANLABS-2021M1024655

PATIENT
  Age: 25 Year
  Sex: Female

DRUGS (8)
  1. IBUPROFEN [Suspect]
     Active Substance: IBUPROFEN
     Indication: Skin lesion
     Dosage: 1200 MILLIGRAM, ONCE A DAY (600 MILLIGRAM, BID)
     Route: 065
  2. PREDNISONE [Suspect]
     Active Substance: PREDNISONE
     Indication: Skin lesion
     Dosage: 50 MILLIGRAM, ONCE A DAY (2 WEEKS A SCALAR)
     Route: 065
  3. PREDNISONE [Suspect]
     Active Substance: PREDNISONE
     Dosage: 15 MILLIGRAM, ONCE A DAY
     Route: 065
  4. PREDNISONE [Suspect]
     Active Substance: PREDNISONE
     Route: 065
  5. COLCHICINE [Suspect]
     Active Substance: COLCHICINE
     Indication: Skin lesion
  6. TRAMADOL [Suspect]
     Active Substance: TRAMADOL
     Indication: Product used for unknown indication
     Route: 048
  7. PANTOPRAZOLE SODIUM [Suspect]
     Active Substance: PANTOPRAZOLE SODIUM
     Indication: Product used for unknown indication
     Route: 065
  8. ADALIMUMAB [Concomitant]
     Active Substance: ADALIMUMAB
     Indication: Psoriatic arthropathy
     Route: 065

REACTIONS (10)
  - Arthralgia [Recovered/Resolved]
  - Polyneuropathy [Unknown]
  - Muscular weakness [Unknown]
  - Haematuria [Unknown]
  - Neuralgia [Recovering/Resolving]
  - Proteinuria [Recovering/Resolving]
  - Oedema peripheral [Unknown]
  - Purpura [Recovered/Resolved]
  - Pain [Unknown]
  - Dysaesthesia [Unknown]
